FAERS Safety Report 11580721 (Version 1)
Quarter: 2015Q3

REPORT INFORMATION
  Report Type: Spontaneous
  Country: KR (occurrence: KR)
  Receive Date: 20150930
  Receipt Date: 20150930
  Transmission Date: 20151125
  Serious: Yes (Hospitalization)
  Sender: FDA-Public Use
  Company Number: KR-AMGEN-KORCT2015101292

PATIENT
  Age: 62 Year
  Sex: Female

DRUGS (8)
  1. DOXORUBICIN [Concomitant]
     Active Substance: DOXORUBICIN
     Dosage: 82 MG, UNK
     Route: 042
     Dates: start: 20150822, end: 20150822
  2. G-LASTA [Suspect]
     Active Substance: PEGFILGRASTIM
     Indication: FEBRILE NEUTROPENIA
     Dosage: 6 MG, 1X/3WEEKS
     Route: 058
     Dates: start: 20150823
  3. G-LASTA [Suspect]
     Active Substance: PEGFILGRASTIM
     Dosage: 6 MG, 1X/3WEEKS
     Route: 058
     Dates: start: 20150913
  4. DOXORUBICIN [Concomitant]
     Active Substance: DOXORUBICIN
     Dosage: 82 MG, UNK
     Route: 042
     Dates: start: 20150912, end: 20150912
  5. DOCETAXEL. [Concomitant]
     Active Substance: DOCETAXEL
     Dosage: 124 MG, UNK
     Route: 042
     Dates: start: 20150822, end: 20150822
  6. DOCETAXEL. [Concomitant]
     Active Substance: DOCETAXEL
     Dosage: 124 MG, UNK
     Route: 042
     Dates: start: 20150912, end: 20150912
  7. CYCLOPHOSPHAMIDE. [Concomitant]
     Active Substance: CYCLOPHOSPHAMIDE
     Dosage: 830 MG, UNK
     Route: 042
     Dates: start: 20150912, end: 20150912
  8. CYCLOPHOSPHAMIDE. [Concomitant]
     Active Substance: CYCLOPHOSPHAMIDE
     Dosage: 830 MG, UNK
     Route: 042
     Dates: start: 20150822, end: 20150822

REACTIONS (1)
  - Neutropenia [Recovered/Resolved]

NARRATIVE: CASE EVENT DATE: 20150918
